FAERS Safety Report 26149020 (Version 2)
Quarter: 2025Q4

REPORT INFORMATION
  Report Type: Spontaneous
  Country: US (occurrence: US)
  Receive Date: 20251212
  Receipt Date: 20251230
  Transmission Date: 20260118
  Serious: Yes (Other)
  Sender: ALKEM
  Company Number: None

PATIENT
  Age: 31 Month
  Sex: Male
  Weight: 14.7 kg

DRUGS (6)
  1. LINEZOLID [Suspect]
     Active Substance: LINEZOLID
     Indication: Mycobacterium abscessus infection
     Dosage: 10 MILLIGRAM/KILOGRAM, TID (EVERY 8 HOUR)
     Route: 042
     Dates: start: 20230127, end: 20231130
  2. LINEZOLID [Suspect]
     Active Substance: LINEZOLID
     Indication: Pathogen resistance
     Dosage: 10 MILLIGRAM/KILOGRAM, BID (Q12H) (EVERY 12 HOUR) (RECHALLENGE DOSE)
  3. BEDAQUILINE [Concomitant]
     Active Substance: BEDAQUILINE
     Indication: Pathogen resistance
     Dosage: 60 MILLIGRAM, ONCE IN 2 WEEKS
     Dates: start: 202304
  4. BEDAQUILINE [Concomitant]
     Active Substance: BEDAQUILINE
     Dosage: 60 MILLIGRAMS, (THREE TIMES WEEKLY)
     Dates: start: 2023
  5. CLOFAZIMINE [Concomitant]
     Active Substance: CLOFAZIMINE
     Indication: Pathogen resistance
     Dosage: 50 MILLIGRAM, ONCE IN 2 WEEKS
     Dates: start: 202303
  6. CLOFAZIMINE [Concomitant]
     Active Substance: CLOFAZIMINE
     Indication: Mycobacterium abscessus infection

REACTIONS (2)
  - Pancreatitis [Recovered/Resolved]
  - Lactic acidosis [Recovered/Resolved]

NARRATIVE: CASE EVENT DATE: 20231127
